FAERS Safety Report 18562816 (Version 1)
Quarter: 2020Q4

REPORT INFORMATION
  Report Type: Spontaneous
  Country: US (occurrence: US)
  Receive Date: 20201130
  Receipt Date: 20201130
  Transmission Date: 20210114
  Serious: No
  Sender: FDA-Public Use
  Company Number: US-ROCHE-2660338

PATIENT
  Sex: Female

DRUGS (18)
  1. METHYLPRED [Concomitant]
     Active Substance: METHYLPREDNISOLONE
  2. LUCENTIS [Suspect]
     Active Substance: RANIBIZUMAB
     Indication: MYOKYMIA
     Dosage: SOL 0.5 MG 0.05 ML, INJECTS 0.5MG INTRAVITREALLY INTO EACH EYE EVERY MONTH
     Route: 050
  3. ATROVAN [Concomitant]
  4. IPRATROPIUM [Concomitant]
     Active Substance: IPRATROPIUM
  5. LORATADINE. [Concomitant]
     Active Substance: LORATADINE
  6. NIFEDIPINE. [Concomitant]
     Active Substance: NIFEDIPINE
     Dosage: 60 MG ER
  7. RANITIDINE. [Concomitant]
     Active Substance: RANITIDINE
  8. AMOXICILLIN. [Concomitant]
     Active Substance: AMOXICILLIN
  9. GUAIFENESIN. [Concomitant]
     Active Substance: GUAIFENESIN
     Dosage: SOL 100/5ML
  10. ACETAMIN [Concomitant]
     Active Substance: ACETAMINOPHEN
  11. CARVEDILOL. [Concomitant]
     Active Substance: CARVEDILOL
  12. LEVOFLOXACIN. [Concomitant]
     Active Substance: LEVOFLOXACIN
  13. A-HYDROCORT [Concomitant]
     Active Substance: HYDROCORTISONE SODIUM SUCCINATE
  14. ASPIRIN. [Concomitant]
     Active Substance: ASPIRIN
     Dosage: 81 MG EC
  15. CLONAZEPAM. [Concomitant]
     Active Substance: CLONAZEPAM
  16. LOSARTAN POTASSIUM. [Concomitant]
     Active Substance: LOSARTAN POTASSIUM
  17. ALBUTEROL. [Concomitant]
     Active Substance: ALBUTEROL
  18. FUROSEMIDE. [Concomitant]
     Active Substance: FUROSEMIDE

REACTIONS (3)
  - Pruritus [Not Recovered/Not Resolved]
  - Intentional product use issue [Unknown]
  - Off label use [Unknown]
